FAERS Safety Report 16365913 (Version 10)
Quarter: 2020Q1

REPORT INFORMATION
  Report Type: Spontaneous
  Country: US (occurrence: US)
  Receive Date: 20190529
  Receipt Date: 20200213
  Transmission Date: 20200409
  Serious: Yes (Hospitalization, Other)
  Sender: FDA-Public Use
  Company Number: US-PFIZER INC-2019226211

PATIENT
  Age: 74 Year
  Sex: Female
  Weight: 84 kg

DRUGS (6)
  1. SERTRALINE HCL [Suspect]
     Active Substance: SERTRALINE HYDROCHLORIDE
     Dosage: 100 MG, TWICE DAILY
     Dates: start: 201804
  2. SERTRALINE HCL [Suspect]
     Active Substance: SERTRALINE HYDROCHLORIDE
     Indication: DEPRESSION
     Dosage: UNK, LOWER DOSE
  3. CARVEDILOL. [Concomitant]
     Active Substance: CARVEDILOL
     Indication: CARDIAC DISORDER
     Dosage: UNK, 2X/DAY
     Route: 048
  4. COREG [Concomitant]
     Active Substance: CARVEDILOL
     Dosage: UNK
  5. SERTRALINE HCL [Suspect]
     Active Substance: SERTRALINE HYDROCHLORIDE
     Indication: MULTIPLE SCLEROSIS
     Dosage: 100 MG, TWICE DAILY (ONCE IN THE MORNING AND ONCE AT NIGHT)
  6. SERTRALINE HCL [Suspect]
     Active Substance: SERTRALINE HYDROCHLORIDE
     Dosage: 100 MG, ONCE DAILY

REACTIONS (24)
  - Visual impairment [Recovering/Resolving]
  - Drug withdrawal syndrome [Recovered/Resolved]
  - Vomiting [Recovered/Resolved]
  - Hypoacusis [Unknown]
  - Abdominal pain upper [Unknown]
  - Fine motor skill dysfunction [Recovered/Resolved]
  - Insomnia [Recovered/Resolved]
  - Dysstasia [Recovering/Resolving]
  - Gait disturbance [Recovering/Resolving]
  - Crying [Not Recovered/Not Resolved]
  - Toxicity to various agents [Unknown]
  - Feeling abnormal [Unknown]
  - Nausea [Unknown]
  - Impaired driving ability [Unknown]
  - Blindness [Unknown]
  - Pain in extremity [Unknown]
  - Multiple sclerosis [Recovered/Resolved]
  - Eye pain [Unknown]
  - Headache [Recovering/Resolving]
  - Depression [Recovered/Resolved]
  - Malaise [Unknown]
  - Blood pressure abnormal [Recovering/Resolving]
  - Weight increased [Recovering/Resolving]
  - Stress [Not Recovered/Not Resolved]

NARRATIVE: CASE EVENT DATE: 201804
